FAERS Safety Report 8365637-6 (Version None)
Quarter: 2012Q2

REPORT INFORMATION
  Report Type: 
  Country: None (occurrence: None)
  Receive Date: 20120516
  Receipt Date: 20120507
  Transmission Date: 20120825
  Serious: Yes (Hospitalization)
  Sender: FDA-Public Use
  Company Number: FR-BIOGENIDEC-2012BI006705

PATIENT
  Age: 34 Year
  Sex: Female

DRUGS (3)
  1. CLONAZEPAM [Concomitant]
  2. ANAFRANIL [Concomitant]
  3. TYSABRI [Suspect]
     Indication: MULTIPLE SCLEROSIS
     Route: 042
     Dates: start: 20090201

REACTIONS (1)
  - NEURALGIA [None]
